FAERS Safety Report 14435208 (Version 1)
Quarter: 2018Q1

REPORT INFORMATION
  Report Type: Spontaneous
  Country: US (occurrence: US)
  Receive Date: 20180124
  Receipt Date: 20180124
  Transmission Date: 20180509
  Serious: Yes (Death, Hospitalization)
  Sender: FDA-Public Use
  Company Number: None

PATIENT
  Age: 3 Year
  Sex: Female
  Weight: 12.3 kg

DRUGS (7)
  1. HYDROCORTISONE. [Suspect]
     Active Substance: HYDROCORTISONE
     Dates: end: 20171209
  2. METHOTREXATE. [Suspect]
     Active Substance: METHOTREXATE
     Dates: end: 20171209
  3. THIOGUANINE (6-TG) [Suspect]
     Active Substance: THIOGUANINE ANHYDROUS
     Dates: end: 20171212
  4. CYCLOPHOSPHAMIDE. [Suspect]
     Active Substance: CYCLOPHOSPHAMIDE
     Dates: end: 20171122
  5. VINCRISTINE SULFATE. [Suspect]
     Active Substance: VINCRISTINE SULFATE
     Dates: end: 20171223
  6. DOXORUBICIN HYDROCHLORIDE. [Suspect]
     Active Substance: DOXORUBICIN HYDROCHLORIDE
     Dates: end: 20171103
  7. ONCASPAR [Suspect]
     Active Substance: PEGASPARGASE
     Dates: end: 20171216

REACTIONS (18)
  - Febrile neutropenia [None]
  - Anaemia [None]
  - Pancytopenia [None]
  - Septic shock [None]
  - Acute kidney injury [None]
  - Hypotension [None]
  - Hypercapnia [None]
  - Pseudomonal bacteraemia [None]
  - Parainfluenzae virus infection [None]
  - Thrombocytopenia [None]
  - Multiple organ dysfunction syndrome [None]
  - Norovirus test positive [None]
  - Acute respiratory distress syndrome [None]
  - Hyponatraemia [None]
  - Blood lactic acid increased [None]
  - Angioedema [None]
  - Respiratory failure [None]
  - Fluid overload [None]

NARRATIVE: CASE EVENT DATE: 20171206
